FAERS Safety Report 6208033-X (Version None)
Quarter: 2009Q2

REPORT INFORMATION
  Report Type: 
  Country: None (occurrence: None)
  Receive Date: 20090529
  Receipt Date: 20090304
  Transmission Date: 20091009
  Serious: No
  Sender: FDA-Public Use
  Company Number: US-KINGPHARMUSA00001-K200900237

PATIENT
  Age: 48 Year
  Sex: Male

DRUGS (1)
  1. FLECTOR [Suspect]
     Indication: ARTHRALGIA
     Dosage: 1 PATCH, QHS
     Route: 061
     Dates: start: 20090201, end: 20090304

REACTIONS (2)
  - CHILLS [None]
  - PYREXIA [None]
